FAERS Safety Report 16310907 (Version 3)
Quarter: 2020Q4

REPORT INFORMATION
  Report Type: Spontaneous
  Country: US (occurrence: US)
  Receive Date: 20190514
  Receipt Date: 20201229
  Transmission Date: 20210113
  Serious: Yes (Death, Other)
  Sender: FDA-Public Use
  Company Number: US-ASTRAZENECA-2019SE67120

PATIENT
  Age: 14951 Day
  Sex: Female
  Weight: 124.7 kg

DRUGS (58)
  1. CYCLOBENZAPRINE. [Concomitant]
     Active Substance: CYCLOBENZAPRINE
     Dates: start: 20140822
  2. VOLTAREN [Concomitant]
     Active Substance: DICLOFENAC SODIUM
     Dates: start: 20140822
  3. AMLODIPINE BESYLATE. [Concomitant]
     Active Substance: AMLODIPINE BESYLATE
     Dates: start: 20141003
  4. CYCLOBENZAPRINE. [Concomitant]
     Active Substance: CYCLOBENZAPRINE
     Dates: start: 20141126
  5. LEVOTHYROXINE. [Concomitant]
     Active Substance: LEVOTHYROXINE
     Dates: start: 20100603
  6. FERROUS SULFATE. [Concomitant]
     Active Substance: FERROUS SULFATE
     Dates: start: 20100518
  7. OMEPRAZOLE. [Suspect]
     Active Substance: OMEPRAZOLE
     Indication: GASTROOESOPHAGEAL REFLUX DISEASE
     Route: 048
     Dates: start: 20101012
  8. AVANDIA [Concomitant]
     Active Substance: ROSIGLITAZONE MALEATE
     Indication: DIABETES MELLITUS
     Dates: start: 20070530, end: 20080304
  9. LISINOPRIL. [Concomitant]
     Active Substance: LISINOPRIL
     Indication: CARDIOVASCULAR DISORDER
     Dates: start: 20071205, end: 20080304
  10. SIMVASTATIN. [Concomitant]
     Active Substance: SIMVASTATIN
     Indication: BLOOD CHOLESTEROL INCREASED
     Dates: start: 20071104
  11. FUROSEMIDE. [Concomitant]
     Active Substance: FUROSEMIDE
     Indication: HYPERTENSION
     Dates: start: 20101106
  12. BYDUREON [Concomitant]
     Active Substance: EXENATIDE
     Dates: start: 20140916
  13. FLUCONAZOLE. [Concomitant]
     Active Substance: FLUCONAZOLE
     Dates: start: 20090610
  14. NARCAN [Concomitant]
     Active Substance: NALOXONE HYDROCHLORIDE
  15. OMEPRAZOLE. [Suspect]
     Active Substance: OMEPRAZOLE
     Indication: GASTROOESOPHAGEAL REFLUX DISEASE
     Dosage: GENERIC
     Route: 065
     Dates: start: 20130622, end: 20150817
  16. RANITIDINE. [Suspect]
     Active Substance: RANITIDINE
     Route: 065
  17. OXYCODONE [Concomitant]
     Active Substance: OXYCODONE
     Indication: PAIN
     Dates: start: 20070508, end: 20180228
  18. BENZONATATE. [Concomitant]
     Active Substance: BENZONATATE
     Dates: start: 20150102
  19. SEROQUEL XR [Concomitant]
     Active Substance: QUETIAPINE FUMARATE
     Dates: start: 20100927
  20. ZANAFLEX [Concomitant]
     Active Substance: TIZANIDINE HYDROCHLORIDE
  21. MULTIVITAMIN [Concomitant]
     Active Substance: VITAMINS
  22. OMEPRAZOLE. [Suspect]
     Active Substance: OMEPRAZOLE
     Indication: GASTROOESOPHAGEAL REFLUX DISEASE
     Dosage: GENERIC
     Route: 065
     Dates: start: 20101012, end: 20101109
  23. NOVOLOG [Concomitant]
     Active Substance: INSULIN ASPART
     Indication: DIABETES MELLITUS
     Dates: start: 20070530, end: 20071205
  24. LANTUS [Concomitant]
     Active Substance: INSULIN GLARGINE
     Indication: DIABETES MELLITUS
     Dates: start: 20070525, end: 20080304
  25. LYRICA [Concomitant]
     Active Substance: PREGABALIN
     Indication: NEURALGIA
     Dates: start: 20101106
  26. MORPHINE SULF [Concomitant]
     Active Substance: MORPHINE SULFATE
     Dates: start: 20140724
  27. IBUPROFEN. [Concomitant]
     Active Substance: IBUPROFEN
     Dates: start: 20140924
  28. GEODON [Concomitant]
     Active Substance: ZIPRASIDONE HYDROCHLORIDE\ZIPRASIDONE MESYLATE
     Dates: start: 20100927
  29. SIMVASTATIN. [Concomitant]
     Active Substance: SIMVASTATIN
     Dates: start: 20100927
  30. DIVALPROEX [Concomitant]
     Active Substance: DIVALPROEX SODIUM
     Dates: start: 20101012
  31. LOPRESSOR [Concomitant]
     Active Substance: METOPROLOL TARTRATE
  32. NYSTOP [Concomitant]
     Active Substance: NYSTATIN
  33. ASPIRIN. [Concomitant]
     Active Substance: ASPIRIN
     Dates: start: 20180915
  34. HYDROCHLOROTHIAZIDE. [Concomitant]
     Active Substance: HYDROCHLOROTHIAZIDE
     Dates: start: 20141126
  35. HUMULIN NOS [Concomitant]
     Active Substance: INSULIN HUMAN
     Dates: start: 20150122
  36. AMMONIUM LACTATE. [Concomitant]
     Active Substance: AMMONIUM LACTATE
     Dates: start: 20101116
  37. ACTOS [Concomitant]
     Active Substance: PIOGLITAZONE HYDROCHLORIDE
     Dates: start: 20100927
  38. DOBUTREX [Concomitant]
     Active Substance: DOBUTAMINE HYDROCHLORIDE
  39. BUSPAR [Concomitant]
     Active Substance: BUSPIRONE HYDROCHLORIDE
  40. DEPAKOTE [Concomitant]
     Active Substance: DIVALPROEX SODIUM
  41. OMEPRAZOLE. [Suspect]
     Active Substance: OMEPRAZOLE
     Indication: GASTROOESOPHAGEAL REFLUX DISEASE
     Route: 048
     Dates: start: 20101012
  42. METRONIDAZOLE. [Concomitant]
     Active Substance: METRONIDAZOLE
     Dates: start: 20140822
  43. GABAPENTIN. [Concomitant]
     Active Substance: GABAPENTIN
     Dates: start: 20141107
  44. CEPHALEXIN. [Concomitant]
     Active Substance: CEPHALEXIN
     Dates: start: 20140407
  45. MELOXICAM. [Concomitant]
     Active Substance: MELOXICAM
     Dates: start: 20130410
  46. METOCLOPRAMIDE. [Concomitant]
     Active Substance: METOCLOPRAMIDE
     Dates: start: 20130617
  47. MIRTAZAPINE. [Concomitant]
     Active Substance: MIRTAZAPINE
     Dates: start: 20100927
  48. NEXIUM [Suspect]
     Active Substance: ESOMEPRAZOLE MAGNESIUM
     Route: 048
     Dates: start: 201203, end: 201706
  49. NEXIUM 24HR [Suspect]
     Active Substance: ESOMEPRAZOLE MAGNESIUM
     Indication: GASTROOESOPHAGEAL REFLUX DISEASE
     Route: 048
     Dates: start: 2015, end: 2018
  50. METFORMIN [Concomitant]
     Active Substance: METFORMIN HYDROCHLORIDE
     Indication: DIABETES MELLITUS
     Dates: start: 20070411, end: 20080304
  51. PIROXICAM. [Concomitant]
     Active Substance: PIROXICAM
     Dates: start: 20141107
  52. CLONAZEPAM. [Concomitant]
     Active Substance: CLONAZEPAM
     Dates: start: 20141222
  53. XYCODONE/ACETAMINOPHEN [Concomitant]
     Dates: start: 20120501
  54. FOLATE [Concomitant]
     Active Substance: FOLATE SODIUM
  55. LORATADINE. [Concomitant]
     Active Substance: LORATADINE
     Dates: start: 20150102
  56. ONDANSETRON [Concomitant]
     Active Substance: ONDANSETRON
     Dates: start: 20140407
  57. AMBIEN [Concomitant]
     Active Substance: ZOLPIDEM TARTRATE
  58. DESYREL [Concomitant]
     Active Substance: TRAZODONE HYDROCHLORIDE

REACTIONS (4)
  - Renal tubular necrosis [Recovered/Resolved]
  - Renal failure [Recovered/Resolved]
  - Chronic kidney disease [Unknown]
  - Acute kidney injury [Recovered/Resolved]

NARRATIVE: CASE EVENT DATE: 20110211
